FAERS Safety Report 9940538 (Version 1)
Quarter: 2014Q1

REPORT INFORMATION
  Report Type: Spontaneous
  Country: US (occurrence: US)
  Receive Date: 20140303
  Receipt Date: 20140303
  Transmission Date: 20141002
  Serious: No
  Sender: FDA-Public Use
  Company Number: US-PFIZER INC-2014060258

PATIENT
  Age: 62 Year
  Sex: Female
  Weight: 63.49 kg

DRUGS (5)
  1. CHANTIX [Suspect]
     Indication: SMOKING CESSATION THERAPY
     Dosage: UNK
     Dates: start: 2014
  2. KLONOPIN [Concomitant]
     Indication: BIPOLAR DISORDER
     Dosage: 2 MG, 2X/DAY
  3. TRILEPTAL [Concomitant]
     Indication: BIPOLAR DISORDER
     Dosage: 400MG IN MORNING AND 600MG IN EVENING
  4. TRAZODONE [Concomitant]
     Indication: BIPOLAR DISORDER
     Dosage: 300 MG, 1X/DAY AT NIGHT
  5. TOPIRAMATE [Concomitant]
     Indication: BIPOLAR DISORDER
     Dosage: 100 MG, 2X/DAY

REACTIONS (1)
  - Thinking abnormal [Unknown]
